FAERS Safety Report 16943960 (Version 3)
Quarter: 2020Q2

REPORT INFORMATION
  Report Type: Report from Study
  Country: FR (occurrence: FR)
  Receive Date: 20191022
  Receipt Date: 20200521
  Transmission Date: 20200713
  Serious: Yes (Other)
  Sender: FDA-Public Use
  Company Number: FR-ROCHE-2436516

PATIENT
  Age: 69 Year
  Sex: Male
  Weight: 113 kg

DRUGS (16)
  1. PROPANOLOL [PROPRANOLOL] [Concomitant]
     Active Substance: PROPRANOLOL HYDROCHLORIDE
     Indication: HYPERTENSION
     Route: 048
  2. SIFROL [Concomitant]
     Active Substance: PRAMIPEXOLE
     Indication: PARKINSON^S DISEASE
     Route: 048
  3. PERINDOPRIL [Concomitant]
     Active Substance: PERINDOPRIL
     Indication: HYPERTENSION
     Route: 065
     Dates: start: 20181221
  4. BISEPTINE [BENZALKONIUM CHLORIDE;BENZYL ALCOHOL;CHLORHEXIDINE GLUCONAT [Concomitant]
     Active Substance: BENZALKONIUM CHLORIDE\BENZYL ALCOHOL\CHLORHEXIDINE
     Route: 065
     Dates: start: 20190116
  5. LAMISIL [TERBINAFINE HYDROCHLORIDE] [Concomitant]
     Indication: INTERTRIGO
     Route: 065
     Dates: start: 20190522, end: 20190612
  6. ECONAZOLE. [Concomitant]
     Active Substance: ECONAZOLE NITRATE
     Indication: GROIN INFECTION
     Route: 065
     Dates: start: 20180919
  7. ULTRA LEVURE [Concomitant]
     Active Substance: SACCHAROMYCES CEREVISIAE
     Route: 065
     Dates: start: 20190416, end: 20190506
  8. DEXERYL [GLYCEROL;PARAFFIN, LIQUID;WHITE SOFT PARAFFIN] [Concomitant]
     Active Substance: GLYCERIN\MINERAL OIL\PETROLATUM
     Indication: XEROSIS
     Route: 065
  9. FUNGIZONE [Concomitant]
     Active Substance: AMPHOTERICIN B
     Route: 065
     Dates: start: 20190501, end: 20190514
  10. AMOXICILLINE [AMOXICILLIN] [Concomitant]
     Active Substance: AMOXICILLIN
     Indication: ERYSIPELAS
     Route: 065
     Dates: start: 20190426, end: 20190506
  11. CICLOPIROX OLAMINE. [Concomitant]
     Active Substance: CICLOPIROX OLAMINE
     Route: 065
     Dates: start: 20190416, end: 20190510
  12. COBIMETINIB. [Suspect]
     Active Substance: COBIMETINIB
     Indication: MALIGNANT MELANOMA
     Dosage: DATE OF MOST RECENT DOSE OF COBIMETINIB PRIOR TO THE ONSET OF CHOLESTASIS: 29/MAY/2019 (40 MG)
     Route: 048
     Dates: start: 20180713
  13. DIFFU K [Concomitant]
     Active Substance: POTASSIUM CHLORIDE
     Indication: HYPOKALAEMIA
     Route: 048
     Dates: start: 20180803
  14. DOLIPRANE [Concomitant]
     Active Substance: ACETAMINOPHEN
     Indication: PYREXIA
     Route: 048
     Dates: start: 20180803
  15. AMYCOR [Concomitant]
     Active Substance: BIFONAZOLE
     Indication: FUNGAL INFECTION
     Route: 065
     Dates: start: 20190416, end: 20190511
  16. ATEZOLIZUMAB. [Suspect]
     Active Substance: ATEZOLIZUMAB
     Indication: MALIGNANT MELANOMA
     Dosage: DATE OF MOST RECENT DOSE OF ATEZOLIZUMAB PRIOR TO THE ONSET OF CHOLESTASIS: 22/MAY/2019 (840 MG)
     Route: 041
     Dates: start: 20180713

REACTIONS (1)
  - Cholestasis [Recovered/Resolved]

NARRATIVE: CASE EVENT DATE: 20190603
